FAERS Safety Report 12716840 (Version 2)
Quarter: 2016Q4

REPORT INFORMATION
  Report Type: Spontaneous
  Country: US (occurrence: US)
  Receive Date: 20160906
  Receipt Date: 20161017
  Transmission Date: 20170207
  Serious: Yes (Hospitalization)
  Sender: FDA-Public Use
  Company Number: PHEH2016US022215

PATIENT
  Sex: Male

DRUGS (1)
  1. JADENU [Suspect]
     Active Substance: DEFERASIROX
     Indication: LYMPHOCYTIC LEUKAEMIA
     Dosage: 1260 MG, QD (ONCE DAILY)
     Route: 048
     Dates: start: 20160122

REACTIONS (1)
  - Loss of consciousness [Unknown]
